FAERS Safety Report 6263819-0 (Version None)
Quarter: 2009Q3

REPORT INFORMATION
  Report Type: 
  Country: None (occurrence: None)
  Receive Date: 20090701
  Receipt Date: 20090424
  Transmission Date: 20100115
  Serious: Yes (Other)
  Sender: FDA-Public Use
  Company Number: 188576USA

PATIENT
  Sex: Female

DRUGS (2)
  1. LAMOTRIGINE [Suspect]
     Indication: EPILEPSY
     Dosage: (150 MG) , ORAL
     Route: 048
  2. LAMOTRIGINE [Suspect]

REACTIONS (2)
  - EPILEPSY [None]
  - FALL [None]
